FAERS Safety Report 7543587-2 (Version None)
Quarter: 2011Q2

REPORT INFORMATION
  Report Type: 
  Country: None (occurrence: None)
  Receive Date: 20110613
  Receipt Date: 20021015
  Transmission Date: 20111010
  Serious: Yes (Hospitalization, Other)
  Sender: FDA-Public Use
  Company Number: PHFR2002GB02874

PATIENT
  Sex: Male

DRUGS (2)
  1. CLOZAPINE [Suspect]
     Indication: PSYCHOTIC DISORDER
     Dosage: 250 MG, QD
     Route: 048
     Dates: start: 20020827
  2. LACTULOSE [Concomitant]
     Indication: CONSTIPATION
     Dosage: 20 ML, QD
     Route: 048
     Dates: start: 20020722

REACTIONS (7)
  - DYSSTASIA [None]
  - LYMPHOPENIA [None]
  - MUSCULAR WEAKNESS [None]
  - MALAISE [None]
  - CIRCULATORY COLLAPSE [None]
  - PALLOR [None]
  - TRANSIENT ISCHAEMIC ATTACK [None]
